FAERS Safety Report 16987330 (Version 5)
Quarter: 2019Q4

REPORT INFORMATION
  Report Type: Spontaneous
  Country: GB (occurrence: GB)
  Receive Date: 20191102
  Receipt Date: 20191217
  Transmission Date: 20200122
  Serious: Yes (Other)
  Sender: FDA-Public Use
  Company Number: NVSC2019GB022262

PATIENT
  Sex: Male

DRUGS (1)
  1. GILENYA [Suspect]
     Active Substance: FINGOLIMOD HYDROCHLORIDE
     Indication: PRODUCT USED FOR UNKNOWN INDICATION
     Dosage: UNK
     Route: 065
     Dates: start: 201306, end: 20191025

REACTIONS (3)
  - Progressive multifocal leukoencephalopathy [Recovering/Resolving]
  - General physical health deterioration [Unknown]
  - JC virus CSF test positive [Unknown]

NARRATIVE: CASE EVENT DATE: 201903
